FAERS Safety Report 5920968-1 (Version None)
Quarter: 2008Q4

REPORT INFORMATION
  Report Type: 
  Country: None (occurrence: None)
  Receive Date: 20081016
  Receipt Date: 20081010
  Transmission Date: 20090506
  Serious: Yes (Hospitalization, Other)
  Sender: FDA-Public Use
  Company Number: IT-WYE-H06057408

PATIENT
  Sex: Male
  Weight: 75 kg

DRUGS (11)
  1. CYCLOSPORINE [Suspect]
     Indication: PROPHYLAXIS AGAINST TRANSPLANT REJECTION
     Route: 048
     Dates: start: 20080724
  2. ACETYLSALICYLIC ACID SRT [Concomitant]
     Indication: PROPHYLAXIS
     Dosage: 100 MG/FREQUENCY NOT PROVIDED
     Route: 048
     Dates: start: 20080725
  3. ENALAPRIL MALEATE [Concomitant]
     Indication: HYPERTENSION
     Dosage: 20 MG/FREQUENCY NOT PROVIDED
     Route: 048
     Dates: start: 20080724
  4. AMLODIPINE [Concomitant]
     Indication: HYPERTENSION
     Dosage: 10 MG/FREQUENCY NOT PROVIDED
     Route: 048
  5. VALGANCICLOVIR HCL [Concomitant]
     Indication: INFECTION
     Dosage: 180 MG/FREQUENCY NOT PROVIDED
     Route: 048
     Dates: start: 20081002
  6. OMEPRAZOLE [Concomitant]
     Indication: PROPHYLAXIS
     Dosage: 20 MG/FREQUENCY NOT PROVIDED
     Route: 048
     Dates: start: 20080724
  7. INSULIN [Concomitant]
     Indication: DIABETES MELLITUS
     Dosage: NOT PROVIDED
     Route: 058
     Dates: start: 20080724
  8. SULFAMETHOXAZOLE AND TRIMETHOPRIM [Concomitant]
     Indication: PROPHYLAXIS
     Dosage: 800/160 MG, 3TIMES PER WEEK
     Dates: start: 20080724, end: 20080915
  9. PREDNISONE [Suspect]
     Indication: PROPHYLAXIS AGAINST TRANSPLANT REJECTION
     Dosage: 5 MG/FREQUENCY NOT PROVIDED
     Route: 048
     Dates: start: 20080724
  10. FLUCONAZOLE [Concomitant]
     Indication: PROPHYLAXIS
     Dosage: 400 MG/FREQUENCY NOT PROVIDED
     Route: 048
     Dates: start: 20080724, end: 20080915
  11. LAMIVUDINE [Concomitant]
     Indication: PROPHYLAXIS
     Dosage: 100 MG/FREQUENCY NOT PROVIDED
     Route: 048
     Dates: start: 20080724

REACTIONS (3)
  - CYTOMEGALOVIRUS INFECTION [None]
  - HEPATIC ENZYME ABNORMAL [None]
  - KAPOSI'S SARCOMA [None]
